FAERS Safety Report 21055944 (Version 2)
Quarter: 2022Q3

REPORT INFORMATION
  Report Type: Spontaneous
  Country: DE (occurrence: DE)
  Receive Date: 20220708
  Receipt Date: 20220806
  Transmission Date: 20221027
  Serious: Yes (Other)
  Sender: FDA-Public Use
  Company Number: DE-BRISTOL-MYERS SQUIBB COMPANY-2022-067762

PATIENT
  Age: 41 Year
  Sex: Female
  Weight: 74 kg

DRUGS (1)
  1. ELIQUIS [Suspect]
     Active Substance: APIXABAN
     Indication: Thrombosis prophylaxis
     Dosage: END DATE WAS REPORTED AS 10-DEC-2020
     Route: 048

REACTIONS (3)
  - Live birth [Unknown]
  - Maternal exposure timing unspecified [Recovered/Resolved]
  - Amniotic cavity infection [Unknown]

NARRATIVE: CASE EVENT DATE: 20220101
